FAERS Safety Report 17190974 (Version 1)
Quarter: 2019Q4

REPORT INFORMATION
  Report Type: Spontaneous
  Country: HR (occurrence: HR)
  Receive Date: 20191223
  Receipt Date: 20191223
  Transmission Date: 20200122
  Serious: Yes (Disabling, Other)
  Sender: FDA-Public Use
  Company Number: HR-B.I. PHARMACEUTICALS,INC./RIDGEFIELD-2019-BI-120445

PATIENT
  Age: 68 Year
  Sex: Male

DRUGS (4)
  1. VARGATEF [Suspect]
     Active Substance: NINTEDANIB
     Indication: ADENOCARCINOMA
     Route: 065
     Dates: start: 201906
  2. DOCETAXEL. [Suspect]
     Active Substance: DOCETAXEL
     Indication: ADENOCARCINOMA
     Route: 065
     Dates: start: 201906
  3. CISPLATIN;PEMETREXED [Concomitant]
     Indication: PRODUCT USED FOR UNKNOWN INDICATION
     Dates: start: 201811, end: 201906
  4. CARBOPLATIN;PACLITAXEL [Concomitant]
     Indication: LUNG NEOPLASM MALIGNANT
     Route: 065
     Dates: end: 201811

REACTIONS (2)
  - Hiccups [Unknown]
  - Metastases to bone [Unknown]

NARRATIVE: CASE EVENT DATE: 201909
